FAERS Safety Report 5036233-3 (Version None)
Quarter: 2006Q2

REPORT INFORMATION
  Report Type: 
  Country: None (occurrence: None)
  Receive Date: 20060531
  Receipt Date: 20060417
  Transmission Date: 20061013
  Serious: Yes (Other)
  Sender: FDA-Public Use
  Company Number: PHEH2006US05045

PATIENT
  Age: 12 Year
  Sex: Male
  Weight: 48.9 kg

DRUGS (2)
  1. EXJADE [Suspect]
     Indication: BLOOD IRON INCREASED
     Dosage: 100 MG, QD, ORAL;  50 MG, QD, ORAL
     Route: 048
     Dates: end: 20060401
  2. EXJADE [Suspect]
     Indication: BLOOD IRON INCREASED
     Dosage: 100 MG, QD, ORAL;  50 MG, QD, ORAL
     Route: 048
     Dates: start: 20051201

REACTIONS (5)
  - ALANINE AMINOTRANSFERASE INCREASED [None]
  - ASPARTATE AMINOTRANSFERASE INCREASED [None]
  - BLOOD ALKALINE PHOSPHATASE INCREASED [None]
  - BLOOD BILIRUBIN INCREASED [None]
  - HEPATITIS [None]
